FAERS Safety Report 12417612 (Version 3)
Quarter: 2016Q2

REPORT INFORMATION
  Report Type: Report from Study
  Country: AT (occurrence: AT)
  Receive Date: 20160530
  Receipt Date: 20160624
  Transmission Date: 20160815
  Serious: Yes (Hospitalization, Other)
  Sender: FDA-Public Use
  Company Number: PHHY2016AT032791

PATIENT
  Sex: Female
  Weight: 62 kg

DRUGS (5)
  1. AROMASIN [Concomitant]
     Active Substance: EXEMESTANE
     Indication: PRODUCT USED FOR UNKNOWN INDICATION
     Dosage: 25 MG, QD
     Route: 065
     Dates: start: 20151218
  2. XGEVA [Concomitant]
     Active Substance: DENOSUMAB
     Dosage: 120 MG, UNK
     Route: 058
     Dates: start: 20160416
  3. AFINITOR [Suspect]
     Active Substance: EVEROLIMUS
     Indication: BREAST CANCER
     Dosage: 10 MG, QD
     Route: 065
     Dates: start: 20151218, end: 20160423
  4. XGEVA [Concomitant]
     Active Substance: DENOSUMAB
     Dosage: UNK, QMO
     Route: 058
     Dates: start: 20160311
  5. XGEVA [Concomitant]
     Active Substance: DENOSUMAB
     Indication: PRODUCT USED FOR UNKNOWN INDICATION
     Dosage: 120 MG, QMO
     Route: 058
     Dates: start: 201410

REACTIONS (29)
  - Diarrhoea [Recovering/Resolving]
  - Anaemia [Unknown]
  - Hypertension [Recovered/Resolved]
  - Glomerular filtration rate decreased [Unknown]
  - Aspartate aminotransferase increased [Unknown]
  - Dizziness [Recovering/Resolving]
  - Vomiting [Recovering/Resolving]
  - Fatigue [Unknown]
  - Thrombocytopenia [Unknown]
  - Skin fissures [Recovered/Resolved]
  - Aortic aneurysm [Unknown]
  - Hypertonia [Unknown]
  - Diabetes mellitus [Unknown]
  - Bone lesion [Unknown]
  - Hyperglycaemia [Unknown]
  - Skin lesion [Recovering/Resolving]
  - Pruritus generalised [Not Recovered/Not Resolved]
  - Nasal mucosal disorder [Recovered/Resolved]
  - Circulatory collapse [Unknown]
  - Nausea [Recovered/Resolved]
  - Impaired healing [Unknown]
  - Haemangioma [Unknown]
  - Blood potassium decreased [Unknown]
  - Asthenia [Recovering/Resolving]
  - Dry skin [Unknown]
  - Blood urea increased [Unknown]
  - Vertigo [Recovered/Resolved]
  - General physical health deterioration [Recovering/Resolving]
  - Abasia [Unknown]

NARRATIVE: CASE EVENT DATE: 20160212
